FAERS Safety Report 10073939 (Version 1)
Quarter: 2014Q2

REPORT INFORMATION
  Report Type: Spontaneous
  Country: US (occurrence: US)
  Receive Date: 20140411
  Receipt Date: 20140411
  Transmission Date: 20141212
  Serious: No
  Sender: FDA-Public Use
  Company Number: US-SANOFI-AVENTIS-2013SA043115

PATIENT
  Sex: Female

DRUGS (1)
  1. ALLEGRA-D, 24 HR [Suspect]
     Indication: PRODUCT USED FOR UNKNOWN INDICATION
     Route: 048

REACTIONS (3)
  - Nasal congestion [Unknown]
  - Eye pruritus [Unknown]
  - Cough [Unknown]
